FAERS Safety Report 5712135-1 (Version None)
Quarter: 2008Q2

REPORT INFORMATION
  Report Type: 
  Country: None (occurrence: None)
  Receive Date: 20080417
  Receipt Date: 20080403
  Transmission Date: 20081010
  Serious: Yes (Other)
  Sender: FDA-Public Use
  Company Number: CERZ-11978

PATIENT
  Age: 11 Year
  Sex: Female

DRUGS (6)
  1. CEREZYME [Suspect]
     Indication: GAUCHER'S DISEASE
     Dosage: 50 U/KG, Q2W, INTRAVENOUS
     Route: 042
     Dates: start: 20011018
  2. CIPRO [Concomitant]
  3. LORTAB [Concomitant]
  4. ACETAMINOPHEN [Concomitant]
  5. MOTRIN [Concomitant]
  6. ALEVE (CAPLET) [Concomitant]

REACTIONS (5)
  - COMPLEX REGIONAL PAIN SYNDROME [None]
  - EOSINOPHILIA MYALGIA SYNDROME [None]
  - EYELID OEDEMA [None]
  - HYPERHIDROSIS [None]
  - PRURITUS [None]
